FAERS Safety Report 10908032 (Version 1)
Quarter: 2015Q1

REPORT INFORMATION
  Report Type: Spontaneous
  Country: US (occurrence: US)
  Receive Date: 20150312
  Receipt Date: 20150312
  Transmission Date: 20150721
  Serious: No
  Sender: FDA-Public Use
  Company Number: US-INCYTE CORPORATION-2015IN000670

PATIENT
  Age: 45 Year
  Sex: Male

DRUGS (1)
  1. JAKAFI [Suspect]
     Active Substance: RUXOLITINIB
     Indication: MYELOFIBROSIS
     Dosage: 5 MG, BID
     Route: 048
     Dates: start: 20150204

REACTIONS (5)
  - Tooth disorder [Unknown]
  - Myalgia [Unknown]
  - Bone pain [Unknown]
  - Gingival bleeding [Unknown]
  - Chills [Unknown]

NARRATIVE: CASE EVENT DATE: 201502
